FAERS Safety Report 5562484-5 (Version None)
Quarter: 2007Q4

REPORT INFORMATION
  Report Type: 
  Country: None (occurrence: None)
  Receive Date: 20071215
  Receipt Date: 20061213
  Transmission Date: 20080405
  Serious: No
  Sender: FDA-Public Use
  Company Number: US-AMGEN-US196516

PATIENT
  Sex: Female
  Weight: 63.6 kg

DRUGS (1)
  1. ENBREL [Suspect]
     Indication: PSORIASIS
     Route: 058
     Dates: start: 20060921, end: 20061001

REACTIONS (5)
  - ARTHRALGIA [None]
  - FACIAL PALSY [None]
  - LIP SWELLING [None]
  - RASH GENERALISED [None]
  - SWELLING FACE [None]
